FAERS Safety Report 9570799 (Version 1)
Quarter: 2013Q3

REPORT INFORMATION
  Report Type: Spontaneous
  Country: US (occurrence: None)
  Receive Date: 20130927
  Receipt Date: 20130927
  Transmission Date: 20140515
  Serious: Yes (Other)
  Sender: FDA-Public Use
  Company Number: 1923459

PATIENT
  Sex: 0

DRUGS (1)
  1. PRECEDEX [Suspect]

REACTIONS (1)
  - Angioedema [None]
